FAERS Safety Report 9490050 (Version 2)
Quarter: 2013Q3

REPORT INFORMATION
  Report Type: Spontaneous
  Country: US (occurrence: US)
  Receive Date: 20130829
  Receipt Date: 20130911
  Transmission Date: 20140515
  Serious: Yes (Hospitalization)
  Sender: FDA-Public Use
  Company Number: US-TMC-CABO-13003192

PATIENT
  Age: 81 Year
  Sex: Male

DRUGS (13)
  1. COMETRIQ [Suspect]
     Indication: PROSTATE CANCER
     Dosage: 100 MG, QD
     Route: 048
     Dates: start: 20130819, end: 201308
  2. COMETRIQ [Suspect]
     Indication: METASTASES TO BONE
     Dosage: 100 MG, QD
     Route: 048
     Dates: start: 201308
  3. MORPHINE SULFATE [Suspect]
     Indication: ABDOMINAL PAIN UPPER
     Dosage: 15 MG, Q2-4HR
     Route: 048
     Dates: start: 20130811, end: 20130821
  4. MORPHINE SULFATE [Suspect]
     Indication: ABDOMINAL PAIN UPPER
     Dosage: 30 MG, BID
     Dates: start: 20130811, end: 20130821
  5. FENTANYL [Suspect]
     Indication: ABDOMINAL PAIN UPPER
     Dosage: 25 ?G, Q1HR
     Route: 062
     Dates: start: 20130811, end: 20130821
  6. TAMSULOSIN [Concomitant]
  7. METOPROLOL [Concomitant]
  8. LISINOPRIL [Concomitant]
  9. AMLODIPINE [Concomitant]
  10. CRESTOR [Concomitant]
  11. PROTONIX [Concomitant]
  12. ASA [Concomitant]
  13. ELIGARD [Concomitant]

REACTIONS (8)
  - Pyrexia [Recovered/Resolved]
  - Ileus [Recovered/Resolved]
  - Nausea [Recovered/Resolved]
  - Dehydration [Recovered/Resolved]
  - Vomiting [Recovered/Resolved]
  - Somnolence [Recovered/Resolved]
  - Asthenia [Recovered/Resolved]
  - Decreased appetite [Recovered/Resolved]
